FAERS Safety Report 5585885-8 (Version None)
Quarter: 2008Q1

REPORT INFORMATION
  Report Type: 
  Country: None (occurrence: None)
  Receive Date: 20080109
  Receipt Date: 20080108
  Transmission Date: 20080703
  Serious: Yes (Hospitalization)
  Sender: FDA-Public Use
  Company Number: AT-BOEHRINGER INGELHEIM PHARMACEUTICALS, INC.-2002-BE-00034BE

PATIENT
  Sex: Male

DRUGS (3)
  1. SIFROL - 0,18 MG - TABLETTEN [Suspect]
     Indication: PARKINSONISM
     Route: 048
  2. SINEMET [Suspect]
     Indication: PARKINSONISM
     Route: 048
  3. INDERAL [Concomitant]

REACTIONS (2)
  - AGRANULOCYTOSIS [None]
  - PNEUMONIA [None]
